FAERS Safety Report 23491146 (Version 1)
Quarter: 2024Q1

REPORT INFORMATION
  Report Type: Other
  Country: US (occurrence: US)
  Receive Date: 20240207
  Receipt Date: 20240207
  Transmission Date: 20240410
  Serious: No
  Sender: FDA-Public Use
  Company Number: US-TEVA-VS-3150235

PATIENT
  Age: 70 Year
  Sex: Female

DRUGS (1)
  1. AUSTEDO [Suspect]
     Active Substance: DEUTETRABENAZINE
     Indication: Tardive dyskinesia
     Dosage: 4.5MG IN THE MORNING AND 4.5 MG IN THE MIDDLE OF THE DAY AND 13.5MG IN THE EVENING
     Route: 048
     Dates: start: 20230215

REACTIONS (1)
  - Inappropriate schedule of product administration [Unknown]
